FAERS Safety Report 5316977-6 (Version None)
Quarter: 2007Q1

REPORT INFORMATION
  Report Type: 
  Country: None (occurrence: None)
  Receive Date: 20070130
  Receipt Date: 20061214
  Transmission Date: 20070707
  Serious: No
  Sender: FDA-Public Use
  Company Number: 200619685US

PATIENT
  Sex: Male

DRUGS (1)
  1. KETEK [Suspect]
     Indication: PNEUMONIA
     Dates: start: 20061024, end: 20061026

REACTIONS (2)
  - RASH [None]
  - URTICARIA [None]
